FAERS Safety Report 7487274-8 (Version None)
Quarter: 2011Q2

REPORT INFORMATION
  Report Type: 
  Country: None (occurrence: None)
  Receive Date: 20110518
  Receipt Date: 20110329
  Transmission Date: 20111010
  Serious: Yes (Hospitalization, Other)
  Sender: FDA-Public Use
  Company Number: US-BAYER-201039724NA

PATIENT
  Age: 26 Year
  Sex: Female
  Weight: 88.435 kg

DRUGS (5)
  1. YASMIN [Suspect]
     Indication: PRODUCT USED FOR UNKNOWN INDICATION
     Route: 048
     Dates: start: 20030801, end: 20050801
  2. AUGMENTIN [Concomitant]
  3. TOPAMAX [Concomitant]
     Indication: CONVULSION
     Dosage: UNK
     Dates: start: 20050101, end: 20090101
  4. ASTHMA INHALER [Concomitant]
  5. IBUPROFEN (ADVIL) [Concomitant]

REACTIONS (3)
  - GALLBLADDER DISORDER [None]
  - CHOLECYSTITIS CHRONIC [None]
  - CONVULSION [None]
